FAERS Safety Report 25945387 (Version 1)
Quarter: 2025Q4

REPORT INFORMATION
  Report Type: Spontaneous
  Country: US (occurrence: US)
  Receive Date: 20251021
  Receipt Date: 20251021
  Transmission Date: 20260119
  Serious: Yes (Other)
  Sender: MERCK SHARP & DOHME LLC
  Company Number: US-009507513-2338601

PATIENT
  Sex: Male

DRUGS (13)
  1. WELIREG [Suspect]
     Active Substance: BELZUTIFAN
     Indication: Renal cancer metastatic
     Dosage: 120 MG / DAILY; STRENGTH: 40 MG
     Route: 048
     Dates: start: 202411
  2. APLERENONE [Concomitant]
  3. VALACYCLOVIR [Concomitant]
     Active Substance: VALACYCLOVIR HYDROCHLORIDE
  4. NEBIVELOL [Concomitant]
  5. MINERALS\VITAMINS [Concomitant]
     Active Substance: MINERALS\VITAMINS
  6. ELIQUIS [Concomitant]
     Active Substance: APIXABAN
  7. PREVICID [Concomitant]
  8. LOSARTAN [Concomitant]
     Active Substance: LOSARTAN
  9. VITAMIN B12 [Concomitant]
     Active Substance: CYANOCOBALAMIN
  10. TADALAFIL [Concomitant]
     Active Substance: TADALAFIL
  11. TESTOSTERONE [Concomitant]
     Active Substance: TESTOSTERONE
  12. FUROSEMIDE [Concomitant]
     Active Substance: FUROSEMIDE
  13. HYDROCHLOROTHIAZIDE [Concomitant]
     Active Substance: HYDROCHLOROTHIAZIDE

REACTIONS (5)
  - Hypoxia [Not Recovered/Not Resolved]
  - Arthralgia [Not Recovered/Not Resolved]
  - Rash [Not Recovered/Not Resolved]
  - Hypertension [Not Recovered/Not Resolved]
  - Fatigue [Not Recovered/Not Resolved]
